FAERS Safety Report 4411168-5 (Version None)
Quarter: 2004Q2

REPORT INFORMATION
  Report Type: 
  Country: None (occurrence: None)
  Receive Date: 20040630
  Receipt Date: 20040514
  Transmission Date: 20050107
  Serious: No
  Sender: FDA-Public Use
  Company Number: 04P-163-0260861-00

PATIENT
  Age: 2 Month
  Sex: Female

DRUGS (2)
  1. HUMIRA [Suspect]
     Indication: RHEUMATOID ARTHRITIS
     Dosage: 40 MG, SUBCUTANEOUS
     Route: 058
     Dates: start: 20040301
  2. IBUPROFEN [Concomitant]

REACTIONS (2)
  - INJECTION SITE PAIN [None]
  - URTICARIA [None]
